FAERS Safety Report 6524996-7 (Version None)
Quarter: 2010Q1

REPORT INFORMATION
  Report Type: 
  Country: None (occurrence: None)
  Receive Date: 20100104
  Receipt Date: 20091204
  Transmission Date: 20100710
  Serious: Yes (Other)
  Sender: FDA-Public Use
  Company Number: PHHY2009IE13210

PATIENT
  Sex: Male

DRUGS (3)
  1. CLOZARIL [Suspect]
     Indication: SCHIZOPHRENIA
     Dosage: 150MG MANE / 200MG NOCTE
     Route: 048
     Dates: start: 20090210
  2. RAMIPRIL [Concomitant]
     Indication: BLOOD PRESSURE INCREASED
     Dosage: 7.5 MG, UNK
     Route: 048
  3. ESCITALOPRAM [Concomitant]
     Indication: DEPRESSED MOOD
     Dosage: 15 MG, UNK
     Route: 048

REACTIONS (1)
  - URINARY TRACT INFECTION [None]
